FAERS Safety Report 18827636 (Version 1)
Quarter: 2021Q1

REPORT INFORMATION
  Report Type: Spontaneous
  Country: CA (occurrence: CA)
  Receive Date: 20210202
  Receipt Date: 20210202
  Transmission Date: 20210419
  Serious: Yes (Hospitalization, Other)
  Sender: FDA-Public Use
  Company Number: CA-JNJFOC-20210147762

PATIENT
  Age: 43 Year
  Sex: Female

DRUGS (3)
  1. ACETAMINOPHEN. [Concomitant]
     Active Substance: ACETAMINOPHEN
     Indication: PREMEDICATION
  2. DIPHENHYDRAMINE. [Concomitant]
     Active Substance: DIPHENHYDRAMINE
     Indication: PREMEDICATION
  3. REMICADE [Suspect]
     Active Substance: INFLIXIMAB
     Indication: CROHN^S DISEASE
     Route: 042

REACTIONS (10)
  - Anxiety [Unknown]
  - Incontinence [Unknown]
  - Paraesthesia [Unknown]
  - Intestinal obstruction [Unknown]
  - Pyrexia [Unknown]
  - Flatulence [Unknown]
  - Palpitations [Unknown]
  - Condition aggravated [Unknown]
  - Abdominal pain [Unknown]
  - Tachycardia [Unknown]
